FAERS Safety Report 5468736-1 (Version None)
Quarter: 2007Q3

REPORT INFORMATION
  Report Type: 
  Country: None (occurrence: None)
  Receive Date: 20070820
  Receipt Date: 20070620
  Transmission Date: 20080115
  Serious: No
  Sender: FDA-Public Use
  Company Number: WAES 0706USA03906

PATIENT
  Age: 64 Year
  Sex: Female

DRUGS (3)
  1. JANUVIA [Suspect]
     Indication: TYPE 2 DIABETES MELLITUS
     Dosage: 100 MG DAILY, PO
     Route: 048
     Dates: start: 20070520, end: 20070617
  2. GLUCOPHAGE [Concomitant]
  3. VYTORIN [Concomitant]

REACTIONS (5)
  - DIARRHOEA [None]
  - DISCOMFORT [None]
  - ERUCTATION [None]
  - NAUSEA [None]
  - VOMITING [None]
